FAERS Safety Report 9690970 (Version 1)
Quarter: 2013Q4

REPORT INFORMATION
  Report Type: Spontaneous
  Country: US (occurrence: US)
  Receive Date: 20131115
  Receipt Date: 20131115
  Transmission Date: 20140711
  Serious: No
  Sender: FDA-Public Use
  Company Number: US-PFIZER INC-2013326027

PATIENT
  Age: 24 Year
  Sex: Male
  Weight: 84.35 kg

DRUGS (3)
  1. DILANTIN [Suspect]
     Dosage: 300 MG, UNK
     Dates: start: 2007
  2. DILANTIN [Suspect]
     Dosage: 500 MG, UNK
  3. DILANTIN [Suspect]
     Dosage: 300 MG, 2X/DAY

REACTIONS (3)
  - Erectile dysfunction [Not Recovered/Not Resolved]
  - Tremor [Not Recovered/Not Resolved]
  - Sexual dysfunction [Not Recovered/Not Resolved]
